FAERS Safety Report 4674392-2 (Version None)
Quarter: 2005Q2

REPORT INFORMATION
  Report Type: 
  Country: None (occurrence: None)
  Receive Date: 20050526
  Receipt Date: 20050401
  Transmission Date: 20051028
  Serious: Yes (Other)
  Sender: FDA-Public Use
  Company Number: PHBS2005BE04661

PATIENT
  Sex: Female

DRUGS (4)
  1. ZOMETA [Suspect]
     Indication: METASTASES TO BONE
     Dosage: EVERY 3 TO 4 WEEKS
     Route: 042
  2. RADIOTHERAPY [Concomitant]
     Dosage: AT HER DORSAL VERTEBRA
     Route: 065
  3. TAXOTERE [Concomitant]
     Route: 065
  4. DEXAMETHASONE [Concomitant]
     Dosage: 8 MG, TID
     Route: 065

REACTIONS (1)
  - ASEPTIC NECROSIS BONE [None]
